FAERS Safety Report 8593828-8 (Version None)
Quarter: 2012Q3

REPORT INFORMATION
  Report Type: 
  Country: None (occurrence: None)
  Receive Date: 20120814
  Receipt Date: 20120809
  Transmission Date: 20120928
  Serious: Yes (Other)
  Sender: FDA-Public Use
  Company Number: JP-VERTEX PHARMACEUTICALS INC.-AE-2012-007735

PATIENT
  Age: 49 Year
  Sex: Male

DRUGS (8)
  1. REBETOL [Concomitant]
     Indication: HEPATITIS C
     Route: 048
     Dates: start: 20120214, end: 20120305
  2. PEG-INTRON [Concomitant]
     Route: 058
     Dates: end: 20120731
  3. REBETOL [Concomitant]
     Route: 048
     Dates: start: 20120306
  4. URSO 250 [Concomitant]
     Route: 048
     Dates: end: 20120227
  5. PEG-INTRON [Concomitant]
     Indication: HEPATITIS C
     Route: 051
     Dates: start: 20120214
  6. TELAVIC [Suspect]
     Indication: HEPATITIS C
     Route: 048
     Dates: start: 20120214
  7. FEBURIC [Concomitant]
     Route: 048
     Dates: start: 20120424, end: 20120501
  8. LOXOPROFEN [Concomitant]
     Route: 048
     Dates: start: 20120215

REACTIONS (1)
  - RHABDOMYOLYSIS [None]
